FAERS Safety Report 17041284 (Version 1)
Quarter: 2019Q4

REPORT INFORMATION
  Report Type: Report from Study
  Country: CA (occurrence: CA)
  Receive Date: 20191118
  Receipt Date: 20191118
  Transmission Date: 20200122
  Serious: Yes (Hospitalization, Other)
  Sender: FDA-Public Use
  Company Number: CA-ORION CORPORATION ORION PHARMA-TREX2019-5507

PATIENT
  Age: 49 Year
  Sex: Male

DRUGS (23)
  1. COSENTYX [Suspect]
     Active Substance: SECUKINUMAB
     Indication: PSORIATIC ARTHROPATHY
     Route: 058
  2. COSENTYX [Suspect]
     Active Substance: SECUKINUMAB
     Route: 058
  3. MUPIROCIN. [Concomitant]
     Active Substance: MUPIROCIN
     Indication: STAPHYLOCOCCAL INFECTION
     Route: 061
  4. NAPROXEN. [Concomitant]
     Active Substance: NAPROXEN
     Route: 065
  5. PANTOPRAZOLE [Concomitant]
     Active Substance: PANTOPRAZOLE
     Route: 065
  6. RANITIDINE. [Concomitant]
     Active Substance: RANITIDINE
     Route: 065
  7. XALATAN [Concomitant]
     Active Substance: LATANOPROST
     Route: 047
  8. CICLOSPORIN [Suspect]
     Active Substance: CYCLOSPORINE
     Indication: PRODUCT USED FOR UNKNOWN INDICATION
     Route: 065
  9. ALLOPURINOL. [Concomitant]
     Active Substance: ALLOPURINOL
     Route: 065
  10. CLOXACILLIN [Concomitant]
     Active Substance: CLOXACILLIN
     Dosage: 4 EVERY 1 DAY(S)
     Route: 065
  11. COSENTYX [Suspect]
     Active Substance: SECUKINUMAB
     Route: 058
  12. BETAMETHASONE DIPROPIONATE-CALCIPOTRIOL [Concomitant]
     Route: 065
  13. COSENTYX [Suspect]
     Active Substance: SECUKINUMAB
     Indication: PSORIASIS
     Route: 058
  14. ACITRETIN. [Concomitant]
     Active Substance: ACITRETIN
     Route: 065
  15. CYCLOCORT [Concomitant]
     Active Substance: AMCINONIDE
     Route: 065
  16. MOMETASONE TEVA [Concomitant]
     Active Substance: MOMETASONE
     Indication: MALE REPRODUCTIVE TRACT DISORDER
     Route: 061
  17. COSENTYX [Suspect]
     Active Substance: SECUKINUMAB
     Route: 058
  18. METHOTREXATE (TRADE NAME UNKNOWN) [Suspect]
     Active Substance: METHOTREXATE
     Indication: PRODUCT USED FOR UNKNOWN INDICATION
     Route: 065
  19. COSENTYX [Suspect]
     Active Substance: SECUKINUMAB
     Route: 058
  20. DOVONEX [Concomitant]
     Active Substance: CALCIPOTRIENE
     Route: 065
  21. HUMIRA [Concomitant]
     Active Substance: ADALIMUMAB
     Route: 058
  22. CHLORHEXIDINE GLUCONATE. [Concomitant]
     Active Substance: CHLORHEXIDINE GLUCONATE
     Indication: STAPHYLOCOCCAL INFECTION
     Route: 065
  23. REMICADE [Concomitant]
     Active Substance: INFLIXIMAB
     Route: 042

REACTIONS (11)
  - Accident [Unknown]
  - Hydrocele [Unknown]
  - Otitis externa fungal [Unknown]
  - Testicular swelling [Unknown]
  - Lower limb fracture [Unknown]
  - Prostatomegaly [Unknown]
  - Psoriasis [Unknown]
  - Upper limb fracture [Unknown]
  - Intestinal polyp [Unknown]
  - Wrist fracture [Unknown]
  - Therapeutic response delayed [Unknown]
